FAERS Safety Report 20605822 (Version 3)
Quarter: 2022Q1

REPORT INFORMATION
  Report Type: Report from Study
  Country: US (occurrence: US)
  Receive Date: 20220317
  Receipt Date: 20220324
  Transmission Date: 20220423
  Serious: No
  Sender: FDA-Public Use
  Company Number: US-NOVARTISTESTPH-NVSC2022US061073

PATIENT
  Sex: Male

DRUGS (1)
  1. XIIDRA [Suspect]
     Active Substance: LIFITEGRAST
     Indication: Dry eye
     Dosage: UNK
     Route: 065

REACTIONS (4)
  - Ocular discomfort [Not Recovered/Not Resolved]
  - Blepharospasm [Not Recovered/Not Resolved]
  - Eye swelling [Not Recovered/Not Resolved]
  - Erythema of eyelid [Not Recovered/Not Resolved]
